FAERS Safety Report 6724508-9 (Version None)
Quarter: 2010Q2

REPORT INFORMATION
  Report Type: 
  Country: None (occurrence: None)
  Receive Date: 20100513
  Receipt Date: 20100506
  Transmission Date: 20101027
  Serious: Yes (Other)
  Sender: FDA-Public Use
  Company Number: BR-PFIZER INC-2010057747

PATIENT
  Age: 41 Year
  Sex: Male

DRUGS (2)
  1. SOLU-MEDROL [Suspect]
     Indication: MULTIPLE SCLEROSIS RELAPSE
     Dosage: 1000 MG, 1X/DAY
  2. BETAFERON [Concomitant]
     Dosage: UNK

REACTIONS (1)
  - MULTIPLE SCLEROSIS RELAPSE [None]
